FAERS Safety Report 14202554 (Version 2)
Quarter: 2018Q1

REPORT INFORMATION
  Report Type: Report from Study
  Country: None (occurrence: US)
  Receive Date: 20171117
  Receipt Date: 20180311
  Transmission Date: 20180508
  Serious: Yes (Other)
  Sender: FDA-Public Use
  Company Number: US-ABBVIE-17K-163-2165120-00

PATIENT
  Sex: Female
  Weight: 94.43 kg

DRUGS (1)
  1. HUMIRA [Suspect]
     Active Substance: ADALIMUMAB
     Indication: ANKYLOSING SPONDYLITIS
     Route: 058

REACTIONS (4)
  - Drug ineffective [Recovering/Resolving]
  - Device issue [Not Recovered/Not Resolved]
  - Ankylosing spondylitis [Recovering/Resolving]
  - Dialysis [Unknown]
